FAERS Safety Report 8707528 (Version 3)
Quarter: 2015Q3

REPORT INFORMATION
  Report Type: Report from Study
  Country: FI (occurrence: FI)
  Receive Date: 20120804
  Receipt Date: 20150921
  Transmission Date: 20151125
  Serious: No
  Sender: FDA-Public Use
  Company Number: FI-UCBSA-062795

PATIENT
  Age: 18 Year
  Sex: Female
  Weight: 74 kg

DRUGS (2)
  1. IBUMAX [Concomitant]
     Indication: TENSION HEADACHE
     Dosage: 400 MG, AS NEEDED (PRN)
     Route: 048
     Dates: start: 2008
  2. LACOSAMIDE EP [Suspect]
     Active Substance: LACOSAMIDE
     Route: 048
     Dates: start: 20120320

REACTIONS (1)
  - Bradycardia [Recovered/Resolved]

NARRATIVE: CASE EVENT DATE: 20120716
